FAERS Safety Report 12994562 (Version 3)
Quarter: 2017Q1

REPORT INFORMATION
  Report Type: Spontaneous
  Country: US (occurrence: US)
  Receive Date: 20161202
  Receipt Date: 20170125
  Transmission Date: 20170428
  Serious: Yes (Hospitalization)
  Sender: FDA-Public Use
  Company Number: US-CELGENEUS-USA-2016116085

PATIENT
  Age: 38 Year
  Sex: Female

DRUGS (29)
  1. CLARITIN [Concomitant]
     Active Substance: LORATADINE
     Indication: MULTIPLE ALLERGIES
     Dosage: NOT PROVIDED
     Route: 065
     Dates: start: 2000
  2. TRAMADOL. [Concomitant]
     Active Substance: TRAMADOL
     Indication: PAIN
     Dosage: DAILY
     Route: 065
     Dates: start: 20161112
  3. DEXAMETHASONE. [Concomitant]
     Active Substance: DEXAMETHASONE
     Dosage: 4MG
     Route: 048
  4. DEXAMETHASONE. [Concomitant]
     Active Substance: DEXAMETHASONE
     Dosage: 30 MILLILITER
     Route: 065
  5. AITVAN [Concomitant]
     Indication: ANXIETY
     Dosage: NOT PROVIDED
     Route: 065
     Dates: start: 201605, end: 20161115
  6. DILAUDID [Concomitant]
     Active Substance: HYDROMORPHONE HYDROCHLORIDE
     Indication: ACUTE PROMYELOCYTIC LEUKAEMIA DIFFERENTIATION SYNDROME
     Dosage: NONE PROVIDED
     Route: 065
     Dates: start: 20161115, end: 20161115
  7. VIDAZA [Suspect]
     Active Substance: AZACITIDINE
     Dosage: 75 MG/M2
     Route: 065
     Dates: start: 20161205
  8. IMODIUM [Concomitant]
     Active Substance: LOPERAMIDE HYDROCHLORIDE
     Indication: DIARRHOEA
     Dosage: NOT PROVIDED
     Route: 065
     Dates: start: 201605, end: 20161115
  9. CIPROFLOXACIN. [Concomitant]
     Active Substance: CIPROFLOXACIN
     Indication: ANTIVIRAL PROPHYLAXIS
     Dosage: NONE PROVIDED
     Route: 065
     Dates: start: 20161204, end: 20161204
  10. DEXAMETHASONE. [Concomitant]
     Active Substance: DEXAMETHASONE
     Dosage: 2MG
     Route: 048
     Dates: end: 20161213
  11. POSACONAZOLE [Concomitant]
     Active Substance: POSACONAZOLE
     Indication: ANTIVIRAL PROPHYLAXIS
     Dosage: NOT PROVIDED
     Route: 065
     Dates: end: 20161115
  12. FLUTICASONE. [Concomitant]
     Active Substance: FLUTICASONE
     Indication: MULTIPLE ALLERGIES
     Dosage: NOT PROVIDED
     Route: 065
  13. OXYCODONE [Concomitant]
     Active Substance: OXYCODONE
     Indication: PAIN
     Dosage: NOT PROVIDED
     Route: 065
     Dates: start: 201605, end: 20161115
  14. LEVAQUIN [Concomitant]
     Active Substance: LEVOFLOXACIN
     Indication: COUGH
     Dosage: NONE PROVIDED
     Route: 065
     Dates: start: 20161205
  15. PANTOPRAZOLE [Concomitant]
     Active Substance: PANTOPRAZOLE SODIUM
     Indication: PRODUCT USED FOR UNKNOWN INDICATION
     Dosage: 80MG
     Route: 065
     Dates: end: 20161115
  16. ACYCLOVIR. [Concomitant]
     Active Substance: ACYCLOVIR
     Dosage: 800MG
     Route: 048
     Dates: start: 20161124
  17. ALBUTEROL. [Concomitant]
     Active Substance: ALBUTEROL
     Indication: COUGH
     Dosage: 1 PUFF
     Route: 065
     Dates: start: 20161128
  18. PRILOSEC [Concomitant]
     Active Substance: OMEPRAZOLE MAGNESIUM
     Indication: OESOPHAGEAL PAIN
     Dosage: NOT PROVIDED
     Route: 065
     Dates: start: 20161202
  19. VIDAZA [Suspect]
     Active Substance: AZACITIDINE
     Indication: ACUTE MYELOID LEUKAEMIA
     Dosage: 75 MG/M2
     Route: 065
     Dates: start: 20161031, end: 20161108
  20. FT-2102 [Suspect]
     Active Substance: INVESTIGATIONAL PRODUCT
     Indication: ACUTE MYELOID LEUKAEMIA
     Dosage: 150 MG
     Route: 065
     Dates: start: 20161031, end: 20161114
  21. FT-2102 [Suspect]
     Active Substance: INVESTIGATIONAL PRODUCT
     Dosage: 150 MG
     Route: 065
     Dates: start: 20161119
  22. FLAGYL [Concomitant]
     Active Substance: METRONIDAZOLE\METRONIDAZOLE HYDROCHLORIDE
     Indication: CLOSTRIDIUM DIFFICILE INFECTION
     Dosage: NOT PROVIDED
     Route: 065
     Dates: start: 201609, end: 20161115
  23. ZOFRAN [Concomitant]
     Active Substance: ONDANSETRON HYDROCHLORIDE
     Indication: NAUSEA
     Dosage: NOT PROVIDED
     Route: 065
     Dates: end: 20161124
  24. PROVERA [Concomitant]
     Active Substance: MEDROXYPROGESTERONE ACETATE
     Indication: MENSTRUAL DISORDER
     Dosage: NOT PROVIDED
     Route: 065
     Dates: end: 20161115
  25. PROVENTIL [Concomitant]
     Active Substance: ALBUTEROL
     Indication: ASTHMA
     Dosage: NOT PROVIDED
     Route: 065
     Dates: start: 1996
  26. DEXAMETHASONE. [Concomitant]
     Active Substance: DEXAMETHASONE
     Indication: CHEST PAIN
     Dosage: 6MG
     Route: 048
     Dates: start: 20161202
  27. ACYCLOVIR. [Concomitant]
     Active Substance: ACYCLOVIR
     Indication: ANTIVIRAL PROPHYLAXIS
     Dosage: NOT PROVIDED
     Route: 048
     Dates: end: 20161124
  28. TYLENOL [Concomitant]
     Active Substance: ACETAMINOPHEN
     Indication: MYALGIA
     Dosage: NOT PROVIDED
     Route: 065
     Dates: start: 20161102, end: 201611
  29. CIPROFLOXACIN. [Concomitant]
     Active Substance: CIPROFLOXACIN
     Indication: COUGH
     Dosage: NONE PROVIDED
     Route: 065
     Dates: end: 20161115

REACTIONS (1)
  - Acute promyelocytic leukaemia differentiation syndrome [Recovered/Resolved]

NARRATIVE: CASE EVENT DATE: 20161114
